FAERS Safety Report 7338473-7 (Version None)
Quarter: 2011Q1

REPORT INFORMATION
  Report Type: 
  Country: None (occurrence: None)
  Receive Date: 20110308
  Receipt Date: 20110223
  Transmission Date: 20110831
  Serious: Yes (Hospitalization, Other)
  Sender: FDA-Public Use
  Company Number: FR-ELI_LILLY_AND_COMPANY-FR201103001282

PATIENT
  Sex: Female

DRUGS (2)
  1. TEGRETOL [Concomitant]
     Indication: BIPOLAR DISORDER
     Dosage: UNK, UNKNOWN
     Dates: start: 20071130, end: 20080530
  2. CYMBALTA [Suspect]
     Indication: BIPOLAR DISORDER
     Dosage: UNK, UNKNOWN
     Route: 048
     Dates: start: 20080515, end: 20080530

REACTIONS (7)
  - ATRIAL FIBRILLATION [None]
  - SYNCOPE [None]
  - ELECTROCARDIOGRAM QRS COMPLEX PROLONGED [None]
  - OFF LABEL USE [None]
  - SUPRAVENTRICULAR TACHYCARDIA [None]
  - HYPERHIDROSIS [None]
  - TACHYCARDIA [None]
